FAERS Safety Report 13793546 (Version 10)
Quarter: 2018Q2

REPORT INFORMATION
  Report Type: Report from Study
  Country: PT (occurrence: PT)
  Receive Date: 20170726
  Receipt Date: 20180419
  Transmission Date: 20180711
  Serious: Yes (Disabling)
  Sender: FDA-Public Use
  Company Number: PT-ROCHE-1967636

PATIENT
  Age: 51 Year
  Sex: Male
  Weight: 68 kg

DRUGS (56)
  1. OBINUTUZUMAB. [Suspect]
     Active Substance: OBINUTUZUMAB
     Dosage: C1D8
     Route: 042
     Dates: start: 20141201, end: 20141201
  2. FLUDARABINE [Suspect]
     Active Substance: FLUDARABINE PHOSPHATE
     Dosage: C3D2
     Route: 042
     Dates: start: 20150127, end: 20150127
  3. FLUDARABINE [Suspect]
     Active Substance: FLUDARABINE PHOSPHATE
     Dosage: C5D1
     Route: 042
     Dates: start: 20150323, end: 20150323
  4. FLUDARABINE [Suspect]
     Active Substance: FLUDARABINE PHOSPHATE
     Dosage: C5D2
     Route: 042
     Dates: start: 20150324, end: 20150324
  5. CYCLOPHOSPHAMIDE. [Suspect]
     Active Substance: CYCLOPHOSPHAMIDE
     Dosage: C1D2
     Route: 042
     Dates: start: 20141125, end: 20141125
  6. CYCLOPHOSPHAMIDE. [Suspect]
     Active Substance: CYCLOPHOSPHAMIDE
     Dosage: C1D3
     Route: 042
     Dates: start: 20141126, end: 20141126
  7. CYCLOPHOSPHAMIDE. [Suspect]
     Active Substance: CYCLOPHOSPHAMIDE
     Dosage: C4D1
     Route: 042
     Dates: start: 20150223, end: 20150223
  8. PEGFILGRASTIM [Concomitant]
     Active Substance: PEGFILGRASTIM
     Route: 058
     Dates: start: 20150326, end: 20150326
  9. PEGFILGRASTIM [Concomitant]
     Active Substance: PEGFILGRASTIM
     Route: 058
     Dates: start: 20170618, end: 20170618
  10. OBINUTUZUMAB. [Suspect]
     Active Substance: OBINUTUZUMAB
     Dosage: C2D1
     Route: 042
     Dates: start: 20141229, end: 20141229
  11. OBINUTUZUMAB. [Suspect]
     Active Substance: OBINUTUZUMAB
     Dosage: C4D1
     Route: 042
     Dates: start: 20150223, end: 20150223
  12. OBINUTUZUMAB. [Suspect]
     Active Substance: OBINUTUZUMAB
     Dosage: C5D1
     Route: 042
     Dates: start: 20150323, end: 20150323
  13. FLUDARABINE [Suspect]
     Active Substance: FLUDARABINE PHOSPHATE
     Dosage: C4D2
     Route: 042
     Dates: start: 20150224, end: 20150224
  14. CYCLOPHOSPHAMIDE. [Suspect]
     Active Substance: CYCLOPHOSPHAMIDE
     Indication: CHRONIC LYMPHOCYTIC LEUKAEMIA
     Dosage: C1D1?AS PER PROTOCOL: 250 MG/M2
     Route: 042
     Dates: start: 20141124, end: 20141124
  15. CYCLOPHOSPHAMIDE. [Suspect]
     Active Substance: CYCLOPHOSPHAMIDE
     Dosage: C6D1
     Route: 042
     Dates: start: 20150420, end: 20150420
  16. PEGFILGRASTIM [Concomitant]
     Active Substance: PEGFILGRASTIM
     Route: 058
     Dates: start: 20150518, end: 20150518
  17. FLUDARABINE [Suspect]
     Active Substance: FLUDARABINE PHOSPHATE
     Dosage: C1D3
     Route: 042
     Dates: start: 20141126, end: 20141126
  18. FLUDARABINE [Suspect]
     Active Substance: FLUDARABINE PHOSPHATE
     Dosage: C3D3
     Route: 042
     Dates: start: 20150128, end: 20150128
  19. DARBEPOETIN ALFA [Concomitant]
     Active Substance: DARBEPOETIN ALFA
     Dosage: EVERY 2 WEEKS
     Route: 058
     Dates: start: 20150323
  20. FILGRASTIM [Concomitant]
     Active Substance: FILGRASTIM
     Route: 058
     Dates: start: 20150310, end: 20150313
  21. FLUDARABINE [Suspect]
     Active Substance: FLUDARABINE PHOSPHATE
     Dosage: C6D3?DATE OF LAST DOSE PRIOR TO SAE
     Route: 042
     Dates: start: 20150422, end: 20150422
  22. CYCLOPHOSPHAMIDE. [Suspect]
     Active Substance: CYCLOPHOSPHAMIDE
     Dosage: C2D1
     Route: 042
     Dates: start: 20141229, end: 20141229
  23. CYCLOPHOSPHAMIDE. [Suspect]
     Active Substance: CYCLOPHOSPHAMIDE
     Dosage: C6D2
     Route: 042
     Dates: start: 20150421, end: 20150421
  24. OBINUTUZUMAB. [Suspect]
     Active Substance: OBINUTUZUMAB
     Dosage: C1D15
     Route: 042
     Dates: start: 20141209, end: 20141209
  25. FLUDARABINE [Suspect]
     Active Substance: FLUDARABINE PHOSPHATE
     Dosage: C2D1
     Route: 042
     Dates: start: 20141229, end: 20141229
  26. FLUDARABINE [Suspect]
     Active Substance: FLUDARABINE PHOSPHATE
     Dosage: C2D3
     Route: 042
     Dates: start: 20141231, end: 20141231
  27. CYCLOPHOSPHAMIDE. [Suspect]
     Active Substance: CYCLOPHOSPHAMIDE
     Dosage: C3D1
     Route: 042
     Dates: start: 20150126, end: 20150126
  28. MIRTAZAPINE. [Concomitant]
     Active Substance: MIRTAZAPINE
     Route: 048
     Dates: start: 2015
  29. PEGFILGRASTIM [Concomitant]
     Active Substance: PEGFILGRASTIM
     Route: 058
     Dates: start: 20150423, end: 20150423
  30. FLUDARABINE [Suspect]
     Active Substance: FLUDARABINE PHOSPHATE
     Dosage: C5D3
     Route: 042
     Dates: start: 20150325, end: 20150325
  31. FLUDARABINE [Suspect]
     Active Substance: FLUDARABINE PHOSPHATE
     Dosage: C6D2
     Route: 042
     Dates: start: 20150421, end: 20150421
  32. CYCLOPHOSPHAMIDE. [Suspect]
     Active Substance: CYCLOPHOSPHAMIDE
     Dosage: C5D2
     Route: 042
     Dates: start: 20150324, end: 20150324
  33. OBINUTUZUMAB. [Suspect]
     Active Substance: OBINUTUZUMAB
     Dosage: C1D2
     Route: 042
     Dates: start: 20141125, end: 20141125
  34. FLUDARABINE [Suspect]
     Active Substance: FLUDARABINE PHOSPHATE
     Indication: CHRONIC LYMPHOCYTIC LEUKAEMIA
     Dosage: C1D1?AS PER PROTOCOL: 25MG/M2
     Route: 042
     Dates: start: 20141124, end: 20141124
  35. FLUDARABINE [Suspect]
     Active Substance: FLUDARABINE PHOSPHATE
     Dosage: C1D2
     Route: 042
     Dates: start: 20141125, end: 20141125
  36. FLUDARABINE [Suspect]
     Active Substance: FLUDARABINE PHOSPHATE
     Dosage: C4D3
     Route: 042
     Dates: start: 20150225, end: 20150225
  37. FLUDARABINE [Suspect]
     Active Substance: FLUDARABINE PHOSPHATE
     Dosage: C6D1
     Route: 042
     Dates: start: 20150420, end: 20150420
  38. CYCLOPHOSPHAMIDE. [Suspect]
     Active Substance: CYCLOPHOSPHAMIDE
     Dosage: C3D2
     Route: 042
     Dates: start: 20150127, end: 20150127
  39. CYCLOPHOSPHAMIDE. [Suspect]
     Active Substance: CYCLOPHOSPHAMIDE
     Dosage: C3D3
     Route: 042
     Dates: start: 20150128, end: 20150128
  40. CYCLOPHOSPHAMIDE. [Suspect]
     Active Substance: CYCLOPHOSPHAMIDE
     Dosage: C4D2
     Route: 042
     Dates: start: 20150224, end: 20150224
  41. CYCLOPHOSPHAMIDE. [Suspect]
     Active Substance: CYCLOPHOSPHAMIDE
     Dosage: C5D3
     Route: 042
     Dates: start: 20150325, end: 20150325
  42. OBINUTUZUMAB. [Suspect]
     Active Substance: OBINUTUZUMAB
     Indication: CHRONIC LYMPHOCYTIC LEUKAEMIA
     Dosage: 24/NOV/2014: C1D1?DATE OF LAST DOSE PRIOR TO SAE: 20/APR/2015
     Route: 042
     Dates: start: 20141124, end: 20141124
  43. OBINUTUZUMAB. [Suspect]
     Active Substance: OBINUTUZUMAB
     Dosage: C3D1
     Route: 042
     Dates: start: 20150126, end: 20150126
  44. OBINUTUZUMAB. [Suspect]
     Active Substance: OBINUTUZUMAB
     Dosage: C6D1
     Route: 042
     Dates: start: 20150420, end: 20150420
  45. FLUDARABINE [Suspect]
     Active Substance: FLUDARABINE PHOSPHATE
     Dosage: C2D2
     Route: 042
     Dates: start: 20141230, end: 20141230
  46. FLUDARABINE [Suspect]
     Active Substance: FLUDARABINE PHOSPHATE
     Dosage: C3D1
     Route: 042
     Dates: start: 20150126, end: 20150126
  47. FLUDARABINE [Suspect]
     Active Substance: FLUDARABINE PHOSPHATE
     Dosage: C4D1
     Route: 042
     Dates: start: 20150223, end: 20150223
  48. CYCLOPHOSPHAMIDE. [Suspect]
     Active Substance: CYCLOPHOSPHAMIDE
     Dosage: C2D2
     Route: 042
     Dates: start: 20141230, end: 20141230
  49. CYCLOPHOSPHAMIDE. [Suspect]
     Active Substance: CYCLOPHOSPHAMIDE
     Dosage: C2D3
     Route: 042
     Dates: start: 20141231, end: 20141231
  50. CYCLOPHOSPHAMIDE. [Suspect]
     Active Substance: CYCLOPHOSPHAMIDE
     Dosage: C4D3
     Route: 042
     Dates: start: 20150225, end: 20150225
  51. CYCLOPHOSPHAMIDE. [Suspect]
     Active Substance: CYCLOPHOSPHAMIDE
     Dosage: C5D1
     Route: 042
     Dates: start: 20150323, end: 20150323
  52. CYCLOPHOSPHAMIDE. [Suspect]
     Active Substance: CYCLOPHOSPHAMIDE
     Dosage: C6D3?DATE OF LAST DOSE PRIOR TO SAE
     Route: 042
     Dates: start: 20150422, end: 20150422
  53. GABAPENTIN. [Concomitant]
     Active Substance: GABAPENTIN
     Route: 048
     Dates: start: 2015
  54. FILGRASTIM [Concomitant]
     Active Substance: FILGRASTIM
     Route: 058
     Dates: start: 20170619, end: 20170716
  55. FILGRASTIM [Concomitant]
     Active Substance: FILGRASTIM
     Route: 058
     Dates: start: 20170717
  56. PEGFILGRASTIM [Concomitant]
     Active Substance: PEGFILGRASTIM
     Route: 058
     Dates: start: 20151102, end: 20151102

REACTIONS (1)
  - Myelodysplastic syndrome [Not Recovered/Not Resolved]

NARRATIVE: CASE EVENT DATE: 20170605
